FAERS Safety Report 5856520-6 (Version None)
Quarter: 2008Q3

REPORT INFORMATION
  Report Type: 
  Country: None (occurrence: None)
  Receive Date: 20080825
  Receipt Date: 20080721
  Transmission Date: 20090109
  Serious: No
  Sender: FDA-Public Use
  Company Number: A0738635A

PATIENT
  Age: 47 Year
  Sex: Female

DRUGS (2)
  1. VERAMYST [Suspect]
     Dosage: 2SPR TWICE PER DAY
     Route: 045
     Dates: start: 20080715, end: 20080718
  2. SPIRONOLACTONE [Concomitant]

REACTIONS (2)
  - BACK PAIN [None]
  - RHINORRHOEA [None]
